FAERS Safety Report 11174179 (Version 2)
Quarter: 2016Q4

REPORT INFORMATION
  Report Type: Report from Study
  Country: FI (occurrence: FI)
  Receive Date: 20150609
  Receipt Date: 20161216
  Transmission Date: 20170206
  Serious: Yes (Hospitalization)
  Sender: FDA-Public Use
  Company Number: FI-ROCHE-1590537

PATIENT
  Age: 59 Year
  Sex: Male

DRUGS (5)
  1. VINCRISTINE [Suspect]
     Active Substance: VINCRISTINE
     Indication: METASTATIC MALIGNANT MELANOMA
     Route: 042
     Dates: start: 201405, end: 201411
  2. VEMURAFENIB [Suspect]
     Active Substance: VEMURAFENIB
     Indication: METASTATIC MALIGNANT MELANOMA
     Dosage: 4 TABLETS IN THE MORNING AND 4 TABLETS IN THE EVENING.
     Route: 048
     Dates: start: 201408, end: 201501
  3. TEMOZOLOMIDE. [Suspect]
     Active Substance: TEMOZOLOMIDE
     Indication: METASTATIC MALIGNANT MELANOMA
     Dosage: ON DAYS 1-5
     Route: 048
     Dates: start: 201405, end: 201411
  4. LOMUSTINE. [Suspect]
     Active Substance: LOMUSTINE
     Indication: METASTATIC MALIGNANT MELANOMA
     Route: 048
     Dates: start: 201405, end: 201411
  5. INTERFERON ALFA-2A [Suspect]
     Active Substance: INTERFERON ALFA-2A
     Indication: METASTATIC MALIGNANT MELANOMA
     Route: 058
     Dates: start: 201408, end: 2014

REACTIONS (2)
  - Pneumonia [Recovered/Resolved]
  - Epilepsy [Recovered/Resolved]

NARRATIVE: CASE EVENT DATE: 20150109
